FAERS Safety Report 8183373-6 (Version None)
Quarter: 2012Q1

REPORT INFORMATION
  Report Type: 
  Country: None (occurrence: None)
  Receive Date: 20120305
  Receipt Date: 20120221
  Transmission Date: 20120608
  Serious: Yes (Hospitalization)
  Sender: FDA-Public Use
  Company Number: JP-UCBSA-030917

PATIENT
  Age: 69 Year
  Sex: Female

DRUGS (14)
  1. RHEUMATREX [Suspect]
     Indication: RHEUMATOID ARTHRITIS
     Route: 048
     Dates: start: 20090129, end: 20110326
  2. FOLIC ACID [Concomitant]
     Dates: start: 20060218, end: 20110327
  3. MISOPROSTOL [Concomitant]
     Dates: start: 20060218, end: 20110330
  4. CALCIPOTRIOL [Concomitant]
     Dosage: ADEQUATE DOSE
     Dates: start: 20101117
  5. ALFACALCIDOL [Concomitant]
     Dates: start: 20090429, end: 20110330
  6. LIRANAFTATE [Concomitant]
     Dosage: EACH TIME ADEQUATE DOSE
     Dates: start: 20091006
  7. RHEUMATREX [Suspect]
     Route: 048
     Dates: start: 20110419
  8. PREDNISOLONE [Suspect]
     Indication: RHEUMATOID ARTHRITIS
     Route: 048
     Dates: start: 20100714, end: 20110330
  9. CERTOLIZUMAB PEGOL [Suspect]
     Indication: RHEUMATOID ARTHRITIS
     Route: 058
     Dates: start: 20101102
  10. CERTOLIZUMAB PEGOL [Suspect]
     Route: 058
     Dates: start: 20090422, end: 20090101
  11. BETAMETHASONE BUTYRATE PROPINATE [Concomitant]
     Dosage: ADEQUATE DOSE
     Dates: start: 20100518
  12. LOXOPROFEN SODIUM [Concomitant]
     Dates: start: 20060218, end: 20110327
  13. CERTOLIZUMAB PEGOL [Suspect]
     Route: 058
     Dates: start: 20091106, end: 20101019
  14. OMEPRAZOLE [Concomitant]
     Dates: start: 20060218, end: 20110330

REACTIONS (2)
  - ENTEROCOLITIS [None]
  - INFLUENZA [None]
